FAERS Safety Report 5612127-7 (Version None)
Quarter: 2008Q1

REPORT INFORMATION
  Report Type: 
  Country: None (occurrence: None)
  Receive Date: 20080204
  Receipt Date: 20080129
  Transmission Date: 20080703
  Serious: Yes (Life-Threatening)
  Sender: FDA-Public Use
  Company Number: PHEH2007US14685

PATIENT
  Age: 66 Year
  Sex: Female
  Weight: 57.596 kg

DRUGS (1)
  1. FORADIL [Suspect]
     Indication: BRONCHIAL HYPERREACTIVITY
     Dosage: 20 UG, BID

REACTIONS (3)
  - DEVICE MALFUNCTION [None]
  - DYSPNOEA [None]
  - PNEUMONIA [None]
